FAERS Safety Report 6104335-6 (Version None)
Quarter: 2009Q1

REPORT INFORMATION
  Report Type: 
  Country: None (occurrence: None)
  Receive Date: 20090305
  Receipt Date: 20090224
  Transmission Date: 20090719
  Serious: Yes (Hospitalization)
  Sender: FDA-Public Use
  Company Number: IT-ABBOTT-05P-083-0318978-00

PATIENT
  Sex: Female
  Weight: 70 kg

DRUGS (7)
  1. HUMIRA [Suspect]
     Indication: RHEUMATOID ARTHRITIS
     Route: 058
     Dates: start: 20050401
  2. SALOPYRINE [Concomitant]
     Indication: RHEUMATOID ARTHRITIS
     Dates: start: 19980101
  3. DELTACORTENE [Concomitant]
     Indication: RHEUMATOID ARTHRITIS
     Dates: start: 19980101
  4. TICLID [Concomitant]
     Indication: DRUG USE FOR UNKNOWN INDICATION
  5. PARIET [Concomitant]
     Indication: PROPHYLAXIS AGAINST GASTROINTESTINAL ULCER
     Dates: start: 19990101
  6. CORITRAMOL [Concomitant]
     Indication: RHEUMATOID ARTHRITIS
     Dates: start: 20050909
  7. COMMERCIAL HUMIRA [Concomitant]
     Indication: RHEUMATOID ARTHRITIS
     Route: 058
     Dates: start: 20040924

REACTIONS (2)
  - DIARRHOEA [None]
  - PYREXIA [None]
